FAERS Safety Report 4994346-6 (Version None)
Quarter: 2006Q2

REPORT INFORMATION
  Report Type: 
  Country: None (occurrence: None)
  Receive Date: 20060503
  Receipt Date: 20060417
  Transmission Date: 20061013
  Serious: Yes (Congenital Anomaly)
  Sender: FDA-Public Use
  Company Number: DSA_28077_2006

PATIENT
  Age: 4 Year
  Sex: 0

DRUGS (1)
  1. TEMESTA [Suspect]
     Dosage: DF TRAN-P
     Route: 064
     Dates: end: 20020101

REACTIONS (4)
  - DRUG EXPOSURE DURING PREGNANCY [None]
  - ENCOPRESIS [None]
  - ENURESIS [None]
  - GASTROINTESTINAL MALFORMATION [None]
